FAERS Safety Report 9438261 (Version 1)
Quarter: 2013Q3

REPORT INFORMATION
  Report Type: Spontaneous
  Country: US (occurrence: None)
  Receive Date: 20130802
  Receipt Date: 20130802
  Transmission Date: 20140515
  Serious: Yes (Hospitalization)
  Sender: FDA-Public Use
  Company Number: None

PATIENT
  Age: 22 Year
  Sex: Male
  Weight: 90.72 kg

DRUGS (1)
  1. LARIAM MEFLOQUIN [Suspect]
     Indication: MALARIA
     Dates: start: 19921201, end: 19930601

REACTIONS (9)
  - Post-traumatic stress disorder [None]
  - Aggression [None]
  - Depression [None]
  - Panic attack [None]
  - Hypomania [None]
  - Hypervigilance [None]
  - Stress [None]
  - Diabetes mellitus [None]
  - Hypertension [None]
